FAERS Safety Report 5874077-0 (Version None)
Quarter: 2008Q3

REPORT INFORMATION
  Report Type: 
  Country: None (occurrence: None)
  Receive Date: 20080908
  Receipt Date: 20080828
  Transmission Date: 20090109
  Serious: Yes (Hospitalization)
  Sender: FDA-Public Use
  Company Number: JP-ASTRAZENECA-2008SE04209

PATIENT
  Sex: Female
  Weight: 43 kg

DRUGS (10)
  1. BLOPRESS [Suspect]
     Indication: HYPERTENSION
     Route: 048
     Dates: start: 20060516, end: 20071028
  2. BLOPRESS [Suspect]
     Route: 048
     Dates: start: 20071029, end: 20071202
  3. BLOPRESS [Suspect]
     Route: 048
     Dates: start: 20071203, end: 20080121
  4. BLOPRESS [Suspect]
     Route: 048
     Dates: start: 20080130, end: 20080204
  5. PRAVASTATIN [Concomitant]
     Route: 048
  6. BUFFERIN [Concomitant]
     Route: 048
  7. SECTRAL [Concomitant]
     Route: 048
  8. DIPYRIDAMOLE [Concomitant]
     Route: 048
  9. NIVADIL [Concomitant]
     Route: 048
  10. ADALAT [Concomitant]
     Indication: HYPERTENSION
     Route: 048
     Dates: start: 20080121

REACTIONS (1)
  - TONGUE NEOPLASM MALIGNANT STAGE UNSPECIFIED [None]
